FAERS Safety Report 22129088 (Version 1)
Quarter: 2023Q1

REPORT INFORMATION
  Report Type: Spontaneous
  Country: CA (occurrence: CA)
  Receive Date: 20230323
  Receipt Date: 20230323
  Transmission Date: 20230418
  Serious: Yes (Other)
  Sender: FDA-Public Use
  Company Number: CA-CELLTRION INC.-2023CA002725

PATIENT

DRUGS (1)
  1. INFLECTRA [Suspect]
     Active Substance: INFLIXIMAB-DYYB
     Indication: Rheumatoid arthritis
     Dosage: 6 MG/KG, EVERY 6 WEEKS
     Route: 042
     Dates: start: 20230202

REACTIONS (5)
  - Cyst [Not Recovered/Not Resolved]
  - Axillary mass [Not Recovered/Not Resolved]
  - Drainage [Not Recovered/Not Resolved]
  - Off label use [Unknown]
  - Off label use [Unknown]
